FAERS Safety Report 22823040 (Version 5)
Quarter: 2023Q4

REPORT INFORMATION
  Report Type: Spontaneous
  Country: US (occurrence: US)
  Receive Date: 20230815
  Receipt Date: 20231124
  Transmission Date: 20240110
  Serious: No
  Sender: FDA-Public Use
  Company Number: US-002147023-NVSC2023US177424

PATIENT
  Sex: Male

DRUGS (1)
  1. COSENTYX [Suspect]
     Active Substance: SECUKINUMAB
     Indication: Product used for unknown indication
     Dosage: 300 MG, QW (ONCE WEEKLY)
     Route: 065

REACTIONS (4)
  - Infection [Unknown]
  - Device malfunction [Unknown]
  - Device defective [Unknown]
  - Accidental exposure to product [Unknown]
